FAERS Safety Report 8193013-8 (Version None)
Quarter: 2012Q1

REPORT INFORMATION
  Report Type: 
  Country: None (occurrence: None)
  Receive Date: 20120221
  Receipt Date: 20120104
  Transmission Date: 20120608
  Serious: Yes (Other)
  Sender: FDA-Public Use
  Company Number: 048830

PATIENT
  Sex: Male

DRUGS (1)
  1. LACOSAMIDE [Suspect]
     Dates: start: 20111219

REACTIONS (1)
  - RASH GENERALISED [None]
